FAERS Safety Report 7597129-6 (Version None)
Quarter: 2011Q3

REPORT INFORMATION
  Report Type: 
  Country: None (occurrence: None)
  Receive Date: 20110708
  Receipt Date: 20110628
  Transmission Date: 20111222
  Serious: Yes (Other)
  Sender: FDA-Public Use
  Company Number: DE-ACTELION-A-US2011-51030

PATIENT

DRUGS (15)
  1. FERROUS FUMARATE [Concomitant]
  2. OMEPRAZOLE [Concomitant]
  3. POTASSIUM CHLORIDE [Concomitant]
  4. TRACLEER [Concomitant]
     Indication: PULMONARY ARTERIAL HYPERTENSION
     Dosage: UNK
     Dates: start: 20101126
  5. PANADOL OSTEO [Concomitant]
  6. REVATIO [Concomitant]
  7. PREGABALIN [Concomitant]
  8. TRAMADOL HCL [Concomitant]
  9. FENTANYL [Concomitant]
  10. SPIRONOLACTONE [Concomitant]
  11. RANITIDINE [Concomitant]
  12. BUMETANIDE [Concomitant]
  13. VENTAVIS [Suspect]
     Indication: PULMONARY ARTERIAL HYPERTENSION
     Dosage: 2.5 UG, UNK
     Route: 055
     Dates: start: 20110615, end: 20110615
  14. TADALAFIL [Concomitant]
  15. ATENOLOL [Concomitant]

REACTIONS (3)
  - PHARYNGEAL OEDEMA [None]
  - VOMITING [None]
  - ASTHMA [None]
